FAERS Safety Report 5089600-6 (Version None)
Quarter: 2006Q3

REPORT INFORMATION
  Report Type: 
  Country: None (occurrence: None)
  Receive Date: 20060822
  Receipt Date: 20060731
  Transmission Date: 20061208
  Serious: Yes (Hospitalization)
  Sender: FDA-Public Use
  Company Number: US200607001557

PATIENT
  Sex: Female
  Weight: 79.4 kg

DRUGS (1)
  1. ZYPREXA [Suspect]
     Indication: DRUG USE FOR UNKNOWN INDICATION
     Dosage: 2.5 MG, DAILY (1/D)
     Dates: start: 20040201, end: 20040901

REACTIONS (3)
  - CHOLECYSTITIS [None]
  - DIABETES MELLITUS [None]
  - HYPERTENSION [None]
